FAERS Safety Report 5781775-6 (Version None)
Quarter: 2008Q2

REPORT INFORMATION
  Report Type: 
  Country: None (occurrence: None)
  Receive Date: 20080623
  Receipt Date: 20070904
  Transmission Date: 20081010
  Serious: No
  Sender: FDA-Public Use
  Company Number: US-ASTRAZENECA-2007UW20828

PATIENT
  Age: 88 Year
  Sex: Female
  Weight: 62.6 kg

DRUGS (9)
  1. RHINOCORT [Suspect]
     Indication: COUGH
     Dosage: 32 MCG 120 METER SPRAY/UNIT
     Route: 045
     Dates: start: 20070825
  2. ATENOLOL [Concomitant]
  3. SYNTHROID [Concomitant]
  4. COZAAR [Concomitant]
  5. LIPITOR [Concomitant]
  6. PLAVIX [Concomitant]
  7. PRANDIN [Concomitant]
  8. CYMBALTA [Concomitant]
  9. ONE A DAY [Concomitant]

REACTIONS (1)
  - NIGHTMARE [None]
